FAERS Safety Report 20757794 (Version 1)
Quarter: 2022Q2

REPORT INFORMATION
  Report Type: Spontaneous
  Country: US (occurrence: None)
  Receive Date: 20220426
  Receipt Date: 20220426
  Transmission Date: 20220720
  Serious: No
  Sender: FDA-Public Use
  Company Number: None

PATIENT
  Age: 33 Year
  Sex: Female
  Weight: 81 kg

DRUGS (3)
  1. DYSPORT [Suspect]
     Active Substance: ABOBOTULINUMTOXINA
     Indication: Skin wrinkling
     Dosage: OTHER FREQUENCY : ONCE;?
     Route: 058
     Dates: start: 20220426, end: 20220426
  2. Amlodipine Hydrochlorithiazide Lexapro [Concomitant]
  3. INOSITOL [Concomitant]
     Active Substance: INOSITOL

REACTIONS (5)
  - Headache [None]
  - Dysphagia [None]
  - Nausea [None]
  - Chest pain [None]
  - Dyspnoea [None]

NARRATIVE: CASE EVENT DATE: 20220426
